FAERS Safety Report 6662483-6 (Version None)
Quarter: 2010Q1

REPORT INFORMATION
  Report Type: 
  Country: None (occurrence: None)
  Receive Date: 20100331
  Receipt Date: 20100324
  Transmission Date: 20100710
  Serious: Yes (Life-Threatening, Other)
  Sender: FDA-Public Use
  Company Number: GB-MERCK-1002GBR00026

PATIENT
  Age: 68 Year
  Sex: Male
  Weight: 65 kg

DRUGS (9)
  1. JANUVIA [Suspect]
     Indication: TYPE 2 DIABETES MELLITUS
     Route: 048
     Dates: start: 20090320
  2. METFORMIN [Concomitant]
     Route: 065
     Dates: start: 20050527
  3. PAROXETINE HYDROCHLORIDE [Concomitant]
     Indication: DEPRESSION
     Route: 065
     Dates: start: 20040224
  4. ATORVASTATIN CALCIUM [Concomitant]
     Indication: LIPIDS INCREASED
     Route: 065
     Dates: start: 20060908
  5. GLICLAZIDE [Concomitant]
     Route: 065
     Dates: start: 20040224
  6. IRBESARTAN [Concomitant]
     Indication: BLOOD PRESSURE INCREASED
     Route: 065
     Dates: start: 20050804, end: 20100226
  7. IRBESARTAN [Concomitant]
     Route: 065
     Dates: start: 20100101
  8. IRBESARTAN [Concomitant]
     Indication: DIABETES MELLITUS
     Route: 065
     Dates: start: 20050804, end: 20100226
  9. IRBESARTAN [Concomitant]
     Route: 065
     Dates: start: 20100101

REACTIONS (1)
  - BLOOD POTASSIUM INCREASED [None]
